FAERS Safety Report 5977708-X (Version None)
Quarter: 2008Q4

REPORT INFORMATION
  Report Type: 
  Country: None (occurrence: None)
  Receive Date: 20081203
  Receipt Date: 20081126
  Transmission Date: 20090506
  Serious: Yes (Other)
  Sender: FDA-Public Use
  Company Number: ES-ROCHE-599923

PATIENT
  Age: 55 Year
  Sex: Female

DRUGS (6)
  1. XELODA [Suspect]
     Indication: COLORECTAL CANCER
     Dosage: FORMULATION: FILM COATED TABLET.
     Route: 048
     Dates: start: 20080903, end: 20081015
  2. AVASTIN [Suspect]
     Indication: COLORECTAL CANCER
     Dosage: STRENGTH: 25 MG/ML/ VIAL 100 MG/ 4 ML CC FOR SOLUTION FOR INFUSION. FREQUENCY NOT REPORTED.
     Route: 042
     Dates: start: 20080903, end: 20081015
  3. ELOXATIN [Suspect]
     Indication: COLORECTAL CANCER
     Dosage: STRENGTH: 5MG/ML VIAL 100 MG/20 ML CC FOR SOLUTION FOR INFUSION. FREQUENCY NOT REPORTED.
     Route: 042
     Dates: start: 20080903, end: 20081015
  4. KYTRIL [Concomitant]
     Dosage: STRENGTH: 1 MG/ML. FORMULATION: INJECTABLE SOLUTION.
     Route: 042
     Dates: start: 20080903, end: 20081015
  5. FORTECORTIN [Concomitant]
     Dosage: STRENGTH: 4 MG/ML. FORMULATION: INJECTABLE SOLUTION.
     Route: 042
     Dates: start: 20080903, end: 20081015
  6. POLARAMINE [Concomitant]
     Dosage: STRENGTH: 5 MG/ML. FORMULATION: INJECTABLE SOLUTION.
     Route: 042
     Dates: start: 20080903, end: 20081015

REACTIONS (4)
  - CYANOSIS [None]
  - FACIAL PALSY [None]
  - LIP OEDEMA [None]
  - TONGUE OEDEMA [None]
